FAERS Safety Report 10042781 (Version 1)
Quarter: 2014Q1

REPORT INFORMATION
  Report Type: Spontaneous
  Country: US (occurrence: US)
  Receive Date: 20140327
  Receipt Date: 20140327
  Transmission Date: 20141002
  Serious: Yes (Hospitalization)
  Sender: FDA-Public Use
  Company Number: US-MERCK-1403USA010362

PATIENT
  Age: 56 Year
  Sex: Male

DRUGS (3)
  1. NOXAFIL [Suspect]
     Dosage: 400 MG, BID
     Route: 048
     Dates: start: 20140313
  2. TACROLIMUS [Concomitant]
  3. PEPCID [Concomitant]

REACTIONS (2)
  - Adverse event [Unknown]
  - Nausea [Not Recovered/Not Resolved]
